FAERS Safety Report 13864298 (Version 2)
Quarter: 2017Q4

REPORT INFORMATION
  Report Type: Spontaneous
  Country: AR (occurrence: AR)
  Receive Date: 20170814
  Receipt Date: 20171005
  Transmission Date: 20180320
  Serious: Yes (Hospitalization)
  Sender: FDA-Public Use
  Company Number: AR-NOVOPROD-557388

PATIENT
  Age: 10 Year
  Sex: Female
  Weight: 41 kg

DRUGS (1)
  1. NORDITROPIN [Suspect]
     Active Substance: SOMATROPIN
     Indication: HYPOPITUITARISM
     Dosage: 0.32 KG/WEEK
     Route: 065
     Dates: start: 201611, end: 20170512

REACTIONS (1)
  - Oral papilloma [Recovering/Resolving]

NARRATIVE: CASE EVENT DATE: 20170512
